FAERS Safety Report 23004335 (Version 2)
Quarter: 2025Q2

REPORT INFORMATION
  Report Type: Spontaneous
  Country: US (occurrence: US)
  Receive Date: 20230928
  Receipt Date: 20250424
  Transmission Date: 20250717
  Serious: No
  Sender: VERTEX
  Company Number: US-VERTEX PHARMACEUTICALS-2022-011673

PATIENT
  Sex: Female

DRUGS (5)
  1. TRIKAFTA [Suspect]
     Active Substance: ELEXACAFTOR\IVACAFTOR\TEZACAFTOR
     Indication: Cystic fibrosis
     Dosage: MORNING AND EVENING DOSE
     Route: 048
     Dates: start: 20220401, end: 202211
  2. TRIKAFTA [Suspect]
     Active Substance: ELEXACAFTOR\IVACAFTOR\TEZACAFTOR
     Dosage: REDUCED DOSE (1 YELLOW TAB AM AND 1/2 BLUE TAB PM)
     Route: 048
     Dates: start: 202211
  3. TRIKAFTA [Suspect]
     Active Substance: ELEXACAFTOR\IVACAFTOR\TEZACAFTOR
     Route: 048
     Dates: start: 202310
  4. TRIKAFTA [Suspect]
     Active Substance: ELEXACAFTOR\IVACAFTOR\TEZACAFTOR
     Route: 048
     Dates: start: 2025
  5. CREON [Concomitant]
     Active Substance: PANCRELIPASE AMYLASE\PANCRELIPASE LIPASE\PANCRELIPASE PROTEASE

REACTIONS (23)
  - Abdominal pain upper [Unknown]
  - Alanine aminotransferase increased [Not Recovered/Not Resolved]
  - Aggression [Recovering/Resolving]
  - Feeling abnormal [Recovering/Resolving]
  - Attention-seeking behaviour [Unknown]
  - Mood swings [Unknown]
  - Behaviour disorder [Not Recovered/Not Resolved]
  - Mood altered [Not Recovered/Not Resolved]
  - Irritability [Not Recovered/Not Resolved]
  - Anger [Recovering/Resolving]
  - Psychotic disorder [Recovering/Resolving]
  - Defiant behaviour [Recovering/Resolving]
  - Psychomotor hyperactivity [Recovering/Resolving]
  - Attention deficit hyperactivity disorder [Unknown]
  - Personality change [Not Recovered/Not Resolved]
  - Pancreatic disorder [Not Recovered/Not Resolved]
  - Decreased appetite [Not Recovered/Not Resolved]
  - Seasonal allergy [Not Recovered/Not Resolved]
  - Post-tussive vomiting [Unknown]
  - Cough [Unknown]
  - Sputum increased [Unknown]
  - Weight gain poor [Not Recovered/Not Resolved]
  - Nasopharyngitis [Unknown]

NARRATIVE: CASE EVENT DATE: 20220101
